FAERS Safety Report 17759741 (Version 1)
Quarter: 2020Q2

REPORT INFORMATION
  Report Type: Spontaneous
  Country: US (occurrence: US)
  Receive Date: 20200507
  Receipt Date: 20200507
  Transmission Date: 20200714
  Serious: Yes (Death)
  Sender: FDA-Public Use
  Company Number: None

PATIENT
  Age: 39 Year
  Sex: Male
  Weight: 95.26 kg

DRUGS (16)
  1. TOCILIZUMAB. [Concomitant]
     Active Substance: TOCILIZUMAB
     Dates: start: 20200421, end: 20200421
  2. IPRATROPIUM [Concomitant]
     Active Substance: IPRATROPIUM
  3. VANCOMYCIN [Concomitant]
     Active Substance: VANCOMYCIN
     Dates: start: 20200427
  4. KCL [Concomitant]
     Active Substance: POTASSIUM CHLORIDE
  5. OXYMETAZOLINE [Concomitant]
     Active Substance: OXYMETAZOLINE
  6. AZITHROMYCIN ANHYDROUS. [Concomitant]
     Active Substance: AZITHROMYCIN ANHYDROUS
     Dates: start: 20200417
  7. PROPOFOL. [Concomitant]
     Active Substance: PROPOFOL
     Dates: start: 20200430
  8. OSELTAMIVIR [Concomitant]
     Active Substance: OSELTAMIVIR
     Dates: start: 20200416, end: 20200416
  9. PIPERACILLIN/TAZOBACTAM [Concomitant]
     Active Substance: PIPERACILLIN SODIUM\TAZOBACTAM SODIUM
     Dates: start: 20200427
  10. ENOXAPARIN [Concomitant]
     Active Substance: ENOXAPARIN
  11. CEFTRIAXONE. [Concomitant]
     Active Substance: CEFTRIAXONE
     Dates: start: 20200417
  12. ACETAMINOPHEN. [Concomitant]
     Active Substance: ACETAMINOPHEN
  13. LOSARTAN. [Concomitant]
     Active Substance: LOSARTAN
  14. HYDROXYCHLOROQUINE SULFATE TABLETS [Suspect]
     Active Substance: HYDROXYCHLOROQUINE SULFATE
     Indication: COVID-19
     Route: 048
     Dates: start: 20200421, end: 20200426
  15. ALBUTEROL. [Concomitant]
     Active Substance: ALBUTEROL
  16. NOREPINEPHRINE. [Concomitant]
     Active Substance: NOREPINEPHRINE
     Dates: start: 20200430

REACTIONS (19)
  - Aspartate aminotransferase increased [None]
  - Bundle branch block right [None]
  - SARS-CoV-2 test positive [None]
  - Serum ferritin increased [None]
  - Myocardial infarction [None]
  - Dyspnoea [None]
  - Oedema peripheral [None]
  - Blood lactate dehydrogenase increased [None]
  - Hypertension [None]
  - Hypoxia [None]
  - Sinus tachycardia [None]
  - Hypokalaemia [None]
  - Blood creatine phosphokinase increased [None]
  - COVID-19 pneumonia [None]
  - Alanine aminotransferase increased [None]
  - Fibrin D dimer increased [None]
  - Leukocytosis [None]
  - Electrocardiogram QT prolonged [None]
  - Blood fibrinogen decreased [None]

NARRATIVE: CASE EVENT DATE: 20200430
